FAERS Safety Report 9828247 (Version 2)
Quarter: 2014Q1

REPORT INFORMATION
  Report Type: Spontaneous
  Country: BR (occurrence: BR)
  Receive Date: 20140117
  Receipt Date: 20140123
  Transmission Date: 20141002
  Serious: Yes (Hospitalization)
  Sender: FDA-Public Use
  Company Number: BR-PFIZER INC-2014013562

PATIENT
  Sex: Male

DRUGS (2)
  1. DALACIN C [Suspect]
     Indication: ANTIBIOTIC PROPHYLAXIS
     Dosage: UNK
     Route: 048
     Dates: start: 201401
  2. DALACIN C [Suspect]
     Indication: INFECTION

REACTIONS (1)
  - Infection [Unknown]
